FAERS Safety Report 19380021 (Version 1)
Quarter: 2021Q2

REPORT INFORMATION
  Report Type: Spontaneous
  Country: US (occurrence: US)
  Receive Date: 20210607
  Receipt Date: 20210607
  Transmission Date: 20210717
  Serious: Yes (Other)
  Sender: FDA-Public Use
  Company Number: US-ROCHE-2717560

PATIENT
  Age: 89 Year
  Sex: Female

DRUGS (3)
  1. XELODA [Suspect]
     Active Substance: CAPECITABINE
     Route: 048
     Dates: start: 202011
  2. XELODA [Suspect]
     Active Substance: CAPECITABINE
     Indication: PRODUCT USED FOR UNKNOWN INDICATION
     Route: 048
     Dates: start: 202010
  3. XELODA [Suspect]
     Active Substance: CAPECITABINE
     Dosage: RESTARTED: 500 MG
     Route: 048

REACTIONS (6)
  - Asthenia [Recovering/Resolving]
  - Arthralgia [Recovering/Resolving]
  - Rectal haemorrhage [Unknown]
  - Fatigue [Unknown]
  - Fatigue [Recovering/Resolving]
  - Dysuria [Unknown]

NARRATIVE: CASE EVENT DATE: 20201110
